FAERS Safety Report 5386947-0 (Version None)
Quarter: 2007Q3

REPORT INFORMATION
  Report Type: 
  Country: None (occurrence: None)
  Receive Date: 20070713
  Receipt Date: 20070702
  Transmission Date: 20080115
  Serious: Yes (Other)
  Sender: FDA-Public Use
  Company Number: IT-PFIZER INC-2007054874

PATIENT
  Sex: Male

DRUGS (5)
  1. VFEND [Suspect]
     Indication: INFECTION
     Route: 048
     Dates: start: 20070624, end: 20070629
  2. CRESTOR [Concomitant]
  3. OLMESARTAN MEDOXOMIL [Concomitant]
  4. NEXIUM [Concomitant]
  5. ASPIRIN [Concomitant]

REACTIONS (3)
  - DISTURBANCE IN SOCIAL BEHAVIOUR [None]
  - OPTIC NEURITIS [None]
  - VISUAL ACUITY REDUCED [None]
